FAERS Safety Report 25108762 (Version 3)
Quarter: 2025Q4

REPORT INFORMATION
  Report Type: Report from Study
  Country: EU (occurrence: EU)
  Receive Date: 20250322
  Receipt Date: 20251224
  Transmission Date: 20260118
  Serious: Yes (Hospitalization)
  Sender: ABBVIE
  Company Number: EU-ABBVIE-6162465

PATIENT
  Age: 56 Year
  Sex: Male

DRUGS (9)
  1. FOSCARBIDOPA\FOSLEVODOPA [Suspect]
     Active Substance: FOSCARBIDOPA\FOSLEVODOPA
     Indication: Parkinson^s disease
     Dosage: DOSAGE: CRN: 0.28 ML/H, CR: 0.34 ML/H, CRH: 0.36 ML/H, ED: 0.20 ML. LAST ADMINISTRATION DATE: 2025
     Route: 058
     Dates: start: 20250228
  2. FOSCARBIDOPA\FOSLEVODOPA [Suspect]
     Active Substance: FOSCARBIDOPA\FOSLEVODOPA
     Dosage: DOSAGE: CRN: 0.30 ML/H, CR: 0.36 ML/H, CRH: 0.38 ML/H, ED: 0.20 ML.
     Route: 058
     Dates: start: 2025, end: 2025
  3. FOSCARBIDOPA\FOSLEVODOPA [Suspect]
     Active Substance: FOSCARBIDOPA\FOSLEVODOPA
     Dosage: CRN:0.30 ML/H, CR: 0.38 ML/H, CRH: 0.40 ML/H, ED: 0.20 ML.
     Route: 058
     Dates: start: 2025, end: 2025
  4. FOSCARBIDOPA\FOSLEVODOPA [Suspect]
     Active Substance: FOSCARBIDOPA\FOSLEVODOPA
     Dosage: ADJUSTED DOSAGE: CRN:0.28 ML/H, CR: 0.36 ML/H, CRH: 0.38 ML/H, ED: 0.20 M
     Route: 058
     Dates: start: 2025, end: 2025
  5. FOSCARBIDOPA\FOSLEVODOPA [Suspect]
     Active Substance: FOSCARBIDOPA\FOSLEVODOPA
     Dosage: CRN: 0.28ML/H, CR: 0.31ML/H, CRH: 0.33ML/H, ED: 0.20ML
     Route: 058
     Dates: start: 2025, end: 2025
  6. FOSCARBIDOPA\FOSLEVODOPA [Suspect]
     Active Substance: FOSCARBIDOPA\FOSLEVODOPA
     Dosage: CRN: 0.25 ML/H, CR: 0.31 ML/H, CRH: 0.33 ML/H, ED: 0.20 ML
     Route: 058
     Dates: start: 2025, end: 2025
  7. FOSCARBIDOPA\FOSLEVODOPA [Suspect]
     Active Substance: FOSCARBIDOPA\FOSLEVODOPA
     Dosage: CRN: 0,28 ML/H, CR: 0,30 ML/H, CRH: 0,32ML/H, ED: 0,20 ML
     Route: 058
     Dates: start: 2025, end: 2025
  8. FOSCARBIDOPA\FOSLEVODOPA [Suspect]
     Active Substance: FOSCARBIDOPA\FOSLEVODOPA
     Dosage: CRN: 0,17 ML/H, CR: 0,31 ML/H, CRH: 0,33 ML/H, ED: 0,20 ML.
     Route: 058
     Dates: start: 2025, end: 2025
  9. FOSCARBIDOPA\FOSLEVODOPA [Suspect]
     Active Substance: FOSCARBIDOPA\FOSLEVODOPA
     Dosage: CRN: 0.19 ML/H, CR: 0.31 ML/H, CRH: 0.33 ML/H, ED: 0.30 ML.
     Route: 058
     Dates: start: 2025

REACTIONS (11)
  - Movement disorder [Recovered/Resolved]
  - Mobility decreased [Not Recovered/Not Resolved]
  - Freezing phenomenon [Not Recovered/Not Resolved]
  - Cognitive disorder [Not Recovered/Not Resolved]
  - On and off phenomenon [Not Recovered/Not Resolved]
  - General physical health deterioration [Not Recovered/Not Resolved]
  - Back pain [Not Recovered/Not Resolved]
  - Malaise [Not Recovered/Not Resolved]
  - Musculoskeletal stiffness [Not Recovered/Not Resolved]
  - Weight decreased [Not Recovered/Not Resolved]
  - Infusion site nodule [Not Recovered/Not Resolved]

NARRATIVE: CASE EVENT DATE: 20250101
